FAERS Safety Report 8839601 (Version 1)
Quarter: 2012Q4

REPORT INFORMATION
  Report Type: 
  Country: US (occurrence: None)
  Receive Date: 20121012
  Receipt Date: 20121012
  Transmission Date: 20130627
  Serious: Yes (Hospitalization)
  Sender: FDA-Public Use
  Company Number: None

PATIENT
  Sex: Male
  Weight: 84.3 kg

DRUGS (2)
  1. CISPLATIN [Suspect]
     Dates: start: 20120921
  2. VINORELBINE TARTRATE [Suspect]
     Dates: start: 20120928

REACTIONS (1)
  - Febrile neutropenia [None]
